FAERS Safety Report 10092684 (Version 1)
Quarter: 2014Q2

REPORT INFORMATION
  Report Type: Spontaneous
  Country: US (occurrence: US)
  Receive Date: 20140421
  Receipt Date: 20140421
  Transmission Date: 20141212
  Serious: No
  Sender: FDA-Public Use
  Company Number: US-SANOFI-AVENTIS-2013SA045184

PATIENT
  Sex: Male

DRUGS (2)
  1. ALLEGRA 24 HOUR [Suspect]
     Dosage: TAKEN FROM- THIS TIME OF THE YEAR
     Route: 065
  2. MAGNESIUM [Concomitant]

REACTIONS (2)
  - Muscle spasms [Unknown]
  - Limb discomfort [Unknown]
